FAERS Safety Report 10666602 (Version 1)
Quarter: 2014Q4

REPORT INFORMATION
  Report Type: Spontaneous
  Country: US (occurrence: US)
  Receive Date: 20141221
  Receipt Date: 20141221
  Transmission Date: 20150529
  Serious: No
  Sender: FDA-Public Use
  Company Number: US-ASTRAZENECA-2014SE96354

PATIENT
  Sex: Female

DRUGS (2)
  1. RHINOCORT AQUA [Suspect]
     Active Substance: BUDESONIDE
     Dosage: GENERIC
     Route: 065
  2. RHINOCORT AQUA [Suspect]
     Active Substance: BUDESONIDE
     Dosage: TWO TIMES A DAY
     Route: 045

REACTIONS (6)
  - Cough [Unknown]
  - Throat irritation [Unknown]
  - Malaise [Unknown]
  - Diarrhoea [Unknown]
  - Abdominal discomfort [Unknown]
  - Dysphonia [Unknown]
